FAERS Safety Report 8818714 (Version 2)
Quarter: 2013Q1

REPORT INFORMATION
  Report Type: Spontaneous
  Country: US (occurrence: US)
  Receive Date: 20121001
  Receipt Date: 20130205
  Transmission Date: 20140127
  Serious: Yes (Hospitalization)
  Sender: FDA-Public Use
  Company Number: US-B.I. PHARMACEUTICALS,INC./RIDGEFIELD-2012-BP-23342BP

PATIENT
  Age: 79 Year
  Sex: Male
  Weight: 127 kg

DRUGS (7)
  1. PRADAXA [Suspect]
     Indication: ATRIAL FIBRILLATION
     Dosage: 150 UNK
     Route: 048
     Dates: end: 20120816
  2. ASA [Suspect]
  3. NEURONTIN [Concomitant]
     Indication: NEUROPATHY PERIPHERAL
     Dosage: 600 NR
  4. METOPROLOL [Concomitant]
     Indication: ATRIAL FIBRILLATION
     Dosage: 500 NR
  5. FUROSEMIDE [Concomitant]
     Indication: HYPERTENSION
     Dosage: 90 NR
  6. ALLOPURINOL [Concomitant]
     Indication: GOUT
     Dosage: 300 NR
  7. PRILOSEC [Concomitant]
     Indication: GASTROOESOPHAGEAL REFLUX DISEASE
     Dosage: 20 NR

REACTIONS (1)
  - Lower gastrointestinal haemorrhage [Recovered/Resolved]
